FAERS Safety Report 20280121 (Version 1)
Quarter: 2021Q4

REPORT INFORMATION
  Report Type: Spontaneous
  Country: US (occurrence: None)
  Receive Date: 20211231
  Receipt Date: 20211231
  Transmission Date: 20220303
  Serious: Yes (Other)
  Sender: FDA-Public Use
  Company Number: None

PATIENT
  Age: 3 Month
  Sex: Female
  Weight: 72.9 kg

DRUGS (19)
  1. JARDIANCE [Suspect]
     Active Substance: EMPAGLIFLOZIN
     Indication: Diabetes mellitus
     Dosage: OTHER QUANTITY : 1 TABLET(S);?
     Route: 048
     Dates: start: 20211112, end: 20211116
  2. METFORMIN [Concomitant]
     Active Substance: METFORMIN HYDROCHLORIDE
  3. ROSUVASTATIN [Concomitant]
     Active Substance: ROSUVASTATIN
  4. Lisinipril/HCTZ [Concomitant]
  5. JANUVIA [Concomitant]
     Active Substance: SITAGLIPTIN PHOSPHATE
  6. GLIMEPIRIDE [Concomitant]
     Active Substance: GLIMEPIRIDE
  7. FINASTERIDE [Concomitant]
  8. METRONIDAZOLE [Concomitant]
     Active Substance: METRONIDAZOLE
  9. MINERALS\VITAMINS [Concomitant]
     Active Substance: MINERALS\VITAMINS
  10. CALCIUM [Concomitant]
     Active Substance: CALCIUM
  11. VITAMIN C [Concomitant]
     Active Substance: ASCORBIC ACID
  12. MAGNESIUM [Concomitant]
     Active Substance: MAGNESIUM
  13. ZINC [Concomitant]
     Active Substance: ZINC
  14. CHOLECALCIFEROL [Concomitant]
     Active Substance: CHOLECALCIFEROL
  15. Super B-Complex [Concomitant]
  16. Alpha Lipoid Acid [Concomitant]
  17. CINNAMON [Concomitant]
     Active Substance: CINNAMON
  18. COD LIVER OIL [Concomitant]
     Active Substance: COD LIVER OIL
  19. CHROMIUM [Concomitant]
     Active Substance: CHROMIC CHLORIDE\CHROMIUM

REACTIONS (1)
  - Abdominal pain lower [None]

NARRATIVE: CASE EVENT DATE: 20211117
